FAERS Safety Report 5033709-X (Version None)
Quarter: 2006Q2

REPORT INFORMATION
  Report Type: 
  Country: None (occurrence: None)
  Receive Date: 20060620
  Receipt Date: 20060619
  Transmission Date: 20061013
  Serious: Yes (Hospitalization)
  Sender: FDA-Public Use
  Company Number: 221395

PATIENT
  Age: 68 Year
  Sex: Female
  Weight: 60 kg

DRUGS (4)
  1. HERCEPTIN [Suspect]
     Indication: BREAST CANCER
     Dosage: 480 MG, INTRAVENOUS
     Route: 042
     Dates: start: 20051215, end: 20051215
  2. IRON (IRON NOS) [Concomitant]
  3. CHLORPHENIRAMINE MALEATE [Concomitant]
  4. MULTIVITAMIN [Concomitant]

REACTIONS (2)
  - FEELING COLD [None]
  - MYOCLONUS [None]
